FAERS Safety Report 8905176 (Version 2)
Quarter: 2012Q4

REPORT INFORMATION
  Report Type: 
  Country: JP (occurrence: JP)
  Receive Date: 20121112
  Receipt Date: 20121214
  Transmission Date: 20130627
  Serious: Yes (Hospitalization, Other)
  Sender: FDA-Public Use
  Company Number: PHHY2012JP103729

PATIENT
  Age: 62 Year
  Sex: Female

DRUGS (4)
  1. DIOVAN [Suspect]
     Indication: HYPERTENSION
     Dosage: 80 mg, daily
     Route: 048
     Dates: start: 201201, end: 201203
  2. PLAVIX [Suspect]
     Dosage: 1 DF, daily
     Route: 048
     Dates: start: 20120121, end: 20120305
  3. LIPITOR [Concomitant]
     Dosage: 1 DF,
     Route: 048
     Dates: start: 20120121, end: 20120305
  4. TAKEPRON [Concomitant]
     Dosage: 1 DF,
     Route: 048
     Dates: start: 20120121, end: 20120305

REACTIONS (1)
  - Agranulocytosis [Recovered/Resolved]
